FAERS Safety Report 10593084 (Version 1)
Quarter: 2014Q4

REPORT INFORMATION
  Report Type: Spontaneous
  Country: US (occurrence: None)
  Receive Date: 20141118
  Receipt Date: 20141118
  Transmission Date: 20150529
  Serious: No
  Sender: FDA-Public Use
  Company Number: None

PATIENT
  Age: 94 Year
  Sex: Male
  Weight: 70.31 kg

DRUGS (1)
  1. DILTIAZEM HYDROCHLORIDE EXTENDED RELEASE [Suspect]
     Active Substance: DILTIAZEM HYDROCHLORIDE
     Indication: ATRIAL FIBRILLATION
     Dosage: 1 PILL DAILY, ONCE DAILY, TAKEN TO MOUTH
     Route: 048
     Dates: start: 20140915, end: 20140916

REACTIONS (2)
  - Blood pressure decreased [None]
  - Product substitution issue [None]

NARRATIVE: CASE EVENT DATE: 20140915
